FAERS Safety Report 10953101 (Version 1)
Quarter: 2015Q1

REPORT INFORMATION
  Report Type: Spontaneous
  Country: US (occurrence: None)
  Receive Date: 20150226
  Receipt Date: 20150226
  Transmission Date: 20150721
  Serious: Yes (Other)
  Sender: FDA-Public Use
  Company Number: TPA2012A02405

PATIENT
  Age: 78 Year
  Sex: Male
  Weight: 108.86 kg

DRUGS (8)
  1. NITROGLYCERIN (GLYCERYL TRINITRATE) [Concomitant]
     Active Substance: NITROGLYCERIN
  2. DOLOBID [Suspect]
     Active Substance: DIFLUNISAL
     Indication: PAIN
  3. ASPIRIN (ACETYLSALICYLIC ACID) [Concomitant]
     Active Substance: ASPIRIN
  4. CHOLESTYRAMINE (COLESTYRAMINE) [Concomitant]
  5. DUETACT [Suspect]
     Active Substance: GLIMEPIRIDE\PIOGLITAZONE HYDROCHLORIDE
     Indication: TYPE 2 DIABETES MELLITUS
     Route: 048
     Dates: start: 20070912, end: 20120507
  6. GLYCERYL TRINITRATE [Concomitant]
     Active Substance: NITROGLYCERIN
  7. DUETACT [Suspect]
     Active Substance: GLIMEPIRIDE\PIOGLITAZONE HYDROCHLORIDE
     Indication: DIABETES MELLITUS
     Route: 048
     Dates: start: 20070912, end: 20120507
  8. METOPROLOL [Concomitant]
     Active Substance: METOPROLOL

REACTIONS (7)
  - Headache [None]
  - Drug ineffective [None]
  - Blood glucose abnormal [None]
  - Blood urine present [None]
  - Blood pressure increased [None]
  - Drug interaction [None]
  - White blood cell count abnormal [None]

NARRATIVE: CASE EVENT DATE: 2012
